FAERS Safety Report 4948674-0 (Version None)
Quarter: 2006Q1

REPORT INFORMATION
  Report Type: 
  Country: None (occurrence: None)
  Receive Date: 20060207
  Receipt Date: 20050915
  Transmission Date: 20060701
  Serious: Yes (Hospitalization)
  Sender: FDA-Public Use
  Company Number: 245430

PATIENT
  Age: 39 Year
  Sex: Male
  Weight: 88 kg

DRUGS (12)
  1. NOVOLOG [Suspect]
     Indication: INSULIN-REQUIRING TYPE II DIABETES MELLITUS
     Dosage: SEE IMAGE
     Route: 058
     Dates: start: 20030101, end: 20050706
  2. NOVOLOG [Suspect]
     Indication: INSULIN-REQUIRING TYPE II DIABETES MELLITUS
     Dosage: SEE IMAGE
     Route: 058
     Dates: start: 20050707
  3. NOVOLOG [Suspect]
  4. NOVOLOG [Suspect]
  5. MINIMED 508 PUMP [Concomitant]
  6. SYNTHROID [Concomitant]
  7. ZESTRIL [Concomitant]
  8. LIPITOR /NET/(ATORVASTATIN CALCIUM) [Concomitant]
  9. ASPIRIN [Concomitant]
  10. NIASPAN [Concomitant]
  11. ROBAXIN [Concomitant]
  12. TYLENOL [Concomitant]

REACTIONS (1)
  - BLOOD GLUCOSE INCREASED [None]
